FAERS Safety Report 23528117 (Version 1)
Quarter: 2024Q1

REPORT INFORMATION
  Report Type: Spontaneous
  Country: US (occurrence: US)
  Receive Date: 20240215
  Receipt Date: 20240215
  Transmission Date: 20240410
  Serious: No
  Sender: FDA-Public Use
  Company Number: US-GLENMARK PHARMACEUTICALS-2023GMK087142

PATIENT

DRUGS (1)
  1. TACROLIMUS [Suspect]
     Active Substance: TACROLIMUS
     Indication: Eczema
     Dosage: UNK, QD
     Route: 061

REACTIONS (9)
  - Tinnitus [Unknown]
  - Inappropriate schedule of product administration [Unknown]
  - Scab [Unknown]
  - Hypoacusis [Unknown]
  - Application site irritation [Unknown]
  - Application site pain [Unknown]
  - Eczema [Not Recovered/Not Resolved]
  - Drug ineffective [Unknown]
  - Product label issue [Unknown]
